FAERS Safety Report 7429352-5 (Version None)
Quarter: 2011Q2

REPORT INFORMATION
  Report Type: 
  Country: None (occurrence: None)
  Receive Date: 20110421
  Receipt Date: 20110411
  Transmission Date: 20111010
  Serious: Yes (Death, Other)
  Sender: FDA-Public Use
  Company Number: CH-SANOFI-AVENTIS-2011SA021030

PATIENT
  Age: 77 Year
  Sex: Male
  Weight: 87 kg

DRUGS (14)
  1. ATENOLOL [Suspect]
     Route: 048
     Dates: end: 20110303
  2. ASPIRIN [Suspect]
     Route: 048
     Dates: end: 20110303
  3. ISOSORBIDE DINITRATE [Concomitant]
     Route: 048
     Dates: end: 20110303
  4. FINASTERIDE [Concomitant]
     Route: 048
     Dates: end: 20110303
  5. ENALAPRIL MALEATE [Suspect]
     Route: 048
     Dates: end: 20110303
  6. JANUVIA [Concomitant]
     Route: 048
     Dates: end: 20110303
  7. PLAVIX [Suspect]
     Route: 048
     Dates: end: 20110303
  8. MINALGIN [Concomitant]
     Route: 048
     Dates: end: 20110303
  9. METFFORMIN HYDROCHLORIDE [Suspect]
     Route: 048
     Dates: end: 20110303
  10. AMLODIPINE [Suspect]
     Route: 048
     Dates: end: 20110303
  11. OLFEN [Suspect]
     Dosage: 850 MG THREE TIMES (NOS)
     Route: 048
     Dates: end: 20110222
  12. GLUTRIL [Suspect]
     Route: 048
     Dates: end: 20110303
  13. PANTOPRAZOLE [Suspect]
     Route: 048
     Dates: end: 20110303
  14. METHOTREXAT [Suspect]
     Indication: POLYMYALGIA RHEUMATICA
     Route: 058
     Dates: start: 19960101, end: 20110201

REACTIONS (24)
  - WOUND HAEMORRHAGE [None]
  - HAEMORRHAGIC ANAEMIA [None]
  - DIARRHOEA [None]
  - DUODENITIS [None]
  - JAUNDICE [None]
  - DUODENAL ULCER HAEMORRHAGE [None]
  - HAEMOGLOBIN DECREASED [None]
  - HEPATORENAL SYNDROME [None]
  - MULTI-ORGAN FAILURE [None]
  - ASCITES [None]
  - REFLUX OESOPHAGITIS [None]
  - INTERNATIONAL NORMALISED RATIO INCREASED [None]
  - HEPATIC CIRRHOSIS [None]
  - DISTURBANCE IN ATTENTION [None]
  - STUPOR [None]
  - HEPATOTOXICITY [None]
  - FEMUR FRACTURE [None]
  - HYPOTENSION [None]
  - VOMITING [None]
  - ACUTE HEPATIC FAILURE [None]
  - LACTIC ACIDOSIS [None]
  - FALL [None]
  - HAEMATEMESIS [None]
  - CIRCULATORY COLLAPSE [None]
